FAERS Safety Report 5829223-1 (Version None)
Quarter: 2008Q2

REPORT INFORMATION
  Report Type: 
  Country: None (occurrence: None)
  Receive Date: 20080601
  Receipt Date: 20080215
  Transmission Date: 20081010
  Serious: No
  Sender: FDA-Public Use
  Company Number: US200802005012

PATIENT
  Age: 65 Year
  Sex: Female

DRUGS (4)
  1. BYETTA [Suspect]
     Indication: TYPE 2 DIABETES MELLITUS
     Dosage: 5 UG, 2/D, SUBCUTANEOUS ; 10 UG, 2/D, SUBCUTANEOUS
     Route: 058
     Dates: start: 20070601, end: 20071101
  2. BYETTA [Suspect]
     Indication: TYPE 2 DIABETES MELLITUS
     Dosage: 5 UG, 2/D, SUBCUTANEOUS ; 10 UG, 2/D, SUBCUTANEOUS
     Route: 058
     Dates: start: 20071101, end: 20080101
  3. TOPROL-XL [Concomitant]
  4. METFORMIN HCL [Concomitant]

REACTIONS (11)
  - BLOOD MAGNESIUM DECREASED [None]
  - DISCOMFORT [None]
  - FATIGUE [None]
  - HYPOTENSION [None]
  - INSOMNIA [None]
  - IRON DEFICIENCY [None]
  - LUNG INFECTION [None]
  - NASOPHARYNGITIS [None]
  - NAUSEA [None]
  - PLATELET COUNT INCREASED [None]
  - VENTRICULAR EXTRASYSTOLES [None]
